FAERS Safety Report 5116774-0 (Version None)
Quarter: 2006Q3

REPORT INFORMATION
  Report Type: 
  Country: None (occurrence: None)
  Receive Date: 20060925
  Receipt Date: 20060911
  Transmission Date: 20061208
  Serious: Yes (Other)
  Sender: FDA-Public Use
  Company Number: 2006112451

PATIENT
  Sex: Female

DRUGS (4)
  1. BEXTRA [Suspect]
     Indication: DRUG USE FOR UNKNOWN INDICATION
  2. ... [Concomitant]
  3. . [Suspect]
  4. ... [Concomitant]

REACTIONS (1)
  - STEVENS-JOHNSON SYNDROME [None]
